FAERS Safety Report 5637286-1 (Version None)
Quarter: 2008Q1

REPORT INFORMATION
  Report Type: 
  Country: None (occurrence: None)
  Receive Date: 20080225
  Receipt Date: 20080221
  Transmission Date: 20080703
  Serious: Yes (Other)
  Sender: FDA-Public Use
  Company Number: NO-JNJFOC-20080204390

PATIENT
  Age: 26 Year
  Sex: Female

DRUGS (2)
  1. TOPAMAX [Suspect]
     Indication: MIGRAINE PROPHYLAXIS
  2. REMERON [Concomitant]
     Indication: TENSION HEADACHE

REACTIONS (3)
  - BLOOD PROLACTIN INCREASED [None]
  - INCREASED APPETITE [None]
  - SENSORY DISTURBANCE [None]
